FAERS Safety Report 10608665 (Version 1)
Quarter: 2014Q4

REPORT INFORMATION
  Report Type: Spontaneous
  Country: PL (occurrence: PL)
  Receive Date: 20141125
  Receipt Date: 20141125
  Transmission Date: 20150529
  Serious: Yes (Other)
  Sender: FDA-Public Use
  Company Number: PL-WATSON-2014-25366

PATIENT
  Age: 99 Year
  Sex: Female

DRUGS (17)
  1. DEXAVEN [Suspect]
     Active Substance: DEXAMETHASONE
     Indication: PRODUCT USED FOR UNKNOWN INDICATION
     Dosage: UNK (JELFA SA)
     Route: 065
     Dates: start: 20131107, end: 20131110
  2. QUETIAPIN [Suspect]
     Active Substance: QUETIAPINE
     Indication: PRODUCT USED FOR UNKNOWN INDICATION
     Dosage: UNK (KETREL, CELON PHARMA)
     Route: 065
     Dates: start: 20131119, end: 20131120
  3. BISOCARD [Suspect]
     Active Substance: BISOPROLOL
     Indication: PRODUCT USED FOR UNKNOWN INDICATION
     Dosage: UNK (PHARMA SWISS)
     Route: 065
  4. KALIUM                             /00031402/ [Concomitant]
     Indication: PRODUCT USED FOR UNKNOWN INDICATION
     Dosage: UNK
     Route: 065
  5. MIRTAZAPINE (UNKNOWN) [Suspect]
     Active Substance: MIRTAZAPINE
     Indication: PRODUCT USED FOR UNKNOWN INDICATION
     Dosage: UNK
     Route: 065
     Dates: start: 20131113, end: 20131126
  6. FLEGAMIN /00004701/ [Suspect]
     Active Substance: BROMHEXINE HYDROCHLORIDE
     Indication: PRODUCT USED FOR UNKNOWN INDICATION
     Dosage: UNK
     Route: 065
     Dates: start: 20131016
  7. UROTRIM /00158501/ [Suspect]
     Active Substance: TRIMETHOPRIM
     Indication: PRODUCT USED FOR UNKNOWN INDICATION
     Dosage: UNK (MEDANA PHARMA)
     Route: 065
     Dates: start: 20131105, end: 20131117
  8. FUROSEMID                          /00032601/ [Concomitant]
     Active Substance: FUROSEMIDE
     Indication: PRODUCT USED FOR UNKNOWN INDICATION
     Dosage: UNK
     Route: 065
  9. VITAMIN C [Concomitant]
     Active Substance: ASCORBIC ACID
     Indication: PRODUCT USED FOR UNKNOWN INDICATION
     Dosage: UNK
     Route: 065
  10. FERRUM SANDOZ /00023502/ [Suspect]
     Active Substance: FERROUS GLUCONATE
     Indication: PRODUCT USED FOR UNKNOWN INDICATION
     Dosage: UNK
     Route: 065
     Dates: start: 20131031, end: 20131111
  11. LACTULOSE (UNKNOWN) [Suspect]
     Active Substance: LACTULOSE
     Indication: PRODUCT USED FOR UNKNOWN INDICATION
     Dosage: UNK
     Route: 065
  12. VAXIGRIP [Suspect]
     Active Substance: INFLUENZA VIRUS VACCINE
     Indication: PRODUCT USED FOR UNKNOWN INDICATION
     Dosage: UNK (AVIAN INFLUENZA A-H7N9 VIRUS)
     Route: 065
     Dates: start: 20131010
  13. HYGROTON [Suspect]
     Active Substance: CHLORTHALIDONE
     Indication: PRODUCT USED FOR UNKNOWN INDICATION
     Dosage: UNK (AMDIPHARMA LTD.)
     Route: 065
     Dates: start: 20131028, end: 20131101
  14. TRIMESAN [Suspect]
     Active Substance: TRIMETHOPRIM
  15. ENARENAL [Suspect]
     Active Substance: ENALAPRIL
     Indication: PRODUCT USED FOR UNKNOWN INDICATION
     Dosage: UNK (ZF POLPHARMA)
     Route: 065
  16. TRIMESAN [Suspect]
     Active Substance: TRIMETHOPRIM
     Indication: PRODUCT USED FOR UNKNOWN INDICATION
     Dosage: UNK (SUN-FARM)
     Route: 065
  17. HYDROXYZINE [Suspect]
     Active Substance: HYDROXYZINE\HYDROXYZINE HYDROCHLORIDE
     Indication: PRODUCT USED FOR UNKNOWN INDICATION
     Dosage: UNK
     Route: 065

REACTIONS (20)
  - Speech disorder [Unknown]
  - Dysphagia [Unknown]
  - Cachexia [Unknown]
  - Decreased appetite [Unknown]
  - Immune system disorder [Unknown]
  - Productive cough [Unknown]
  - Dyspnoea [Unknown]
  - Altered state of consciousness [Unknown]
  - Blood disorder [Unknown]
  - Gastritis [Unknown]
  - Decubitus ulcer [Unknown]
  - Rash [Unknown]
  - Petechiae [Unknown]
  - Pyrexia [Unknown]
  - Asthenia [Unknown]
  - Hyperhidrosis [Unknown]
  - Somnolence [Unknown]
  - Nausea [Unknown]
  - Impaired healing [Unknown]
  - Erythema [Unknown]
